FAERS Safety Report 5922855-1 (Version None)
Quarter: 2008Q4

REPORT INFORMATION
  Report Type: 
  Country: None (occurrence: None)
  Receive Date: 20081017
  Receipt Date: 20081010
  Transmission Date: 20090506
  Serious: Yes (Death, Hospitalization)
  Sender: FDA-Public Use
  Company Number: PHHY2008JP13955

PATIENT
  Sex: Female

DRUGS (7)
  1. EXJADE [Suspect]
     Indication: IRON OVERLOAD
     Dosage: 125 MG, QD
     Route: 048
     Dates: start: 20080702, end: 20080704
  2. EXJADE [Suspect]
     Indication: MYELODYSPLASTIC SYNDROME
  3. NEORAL [Suspect]
     Indication: APLASTIC ANAEMIA
     Dosage: 300 MG/DAY
     Route: 048
     Dates: start: 20060512, end: 20060706
  4. NEORAL [Suspect]
     Dosage: 200 MG/DAY
     Route: 048
     Dates: start: 20060707, end: 20070520
  5. NEORAL [Suspect]
     Dosage: 300 MG/DAY
     Route: 048
     Dates: start: 20070521, end: 20080328
  6. TRANSAMIN [Concomitant]
     Indication: HAEMORRHAGE
     Dosage: 750 MG, UNK
     Route: 048
     Dates: start: 20080618, end: 20080715
  7. ADONA [Concomitant]
     Indication: HAEMORRHAGE
     Dosage: 90 MG, UNK
     Route: 048
     Dates: start: 20080618, end: 20080715

REACTIONS (6)
  - CEREBRAL HAEMORRHAGE [None]
  - DEHYDRATION [None]
  - DIARRHOEA [None]
  - DUODENAL ULCER [None]
  - RENAL DISORDER [None]
  - VOMITING [None]
